FAERS Safety Report 8588983-X (Version None)
Quarter: 2012Q3

REPORT INFORMATION
  Report Type: 
  Country: None (occurrence: None)
  Receive Date: 20120813
  Receipt Date: 20120802
  Transmission Date: 20120928
  Serious: Yes (Death, Other)
  Sender: FDA-Public Use
  Company Number: AT-CELGENEUS-009-50794-11090210

PATIENT

DRUGS (5)
  1. VIDAZA [Suspect]
     Route: 065
     Dates: start: 20070201, end: 20120201
  2. ERYTHROPOIESIS STIMULATING AGENTS [Concomitant]
     Route: 065
  3. INTEGRATIVE CANCER TREATMENT [Concomitant]
     Route: 065
  4. VIDAZA [Suspect]
     Route: 065
     Dates: start: 20070201, end: 20110701
  5. NEUPOGEN [Concomitant]
     Route: 065

REACTIONS (40)
  - INFECTION [None]
  - HERPES SIMPLEX [None]
  - NAUSEA [None]
  - EMBOLISM [None]
  - LUNG INFECTION [None]
  - UPPER RESPIRATORY TRACT INFECTION [None]
  - LIVER DISORDER [None]
  - RENAL DISORDER [None]
  - GASTROINTESTINAL INFECTION [None]
  - CONSTIPATION [None]
  - INJECTION SITE REACTION [None]
  - FRACTURE [None]
  - SEPSIS [None]
  - FEBRILE NEUTROPENIA [None]
  - CYTOMEGALOVIRUS INFECTION [None]
  - VOMITING [None]
  - DIARRHOEA [None]
  - PAIN [None]
  - NERVOUS SYSTEM DISORDER [None]
  - CARDIAC DISORDER [None]
  - NEUTROPENIA [None]
  - ANAEMIA [None]
  - DEATH [None]
  - ACUTE MYELOID LEUKAEMIA [None]
  - NEOPLASM [None]
  - ARRHYTHMIA [None]
  - URINARY TRACT INFECTION [None]
  - METABOLIC DISORDER [None]
  - DISEASE PROGRESSION [None]
  - NO THERAPEUTIC RESPONSE [None]
  - MYOCARDIAL ISCHAEMIA [None]
  - HAEMORRHAGE [None]
  - THROMBOCYTOPENIA [None]
  - ABSCESS [None]
  - FATIGUE [None]
  - BLOOD PRESSURE ABNORMAL [None]
  - LEFT VENTRICULAR FAILURE [None]
  - PYREXIA [None]
  - DEVICE RELATED INFECTION [None]
  - GASTROINTESTINAL DISORDER [None]
